FAERS Safety Report 5405244-8 (Version None)
Quarter: 2007Q3

REPORT INFORMATION
  Report Type: 
  Country: None (occurrence: None)
  Receive Date: 20070803
  Receipt Date: 20070726
  Transmission Date: 20080115
  Serious: Yes (Hospitalization)
  Sender: FDA-Public Use
  Company Number: AU-ROCHE-509249

PATIENT
  Age: 51 Year
  Sex: Male

DRUGS (1)
  1. INTERFERON ALFA [Suspect]
     Indication: HEPATITIS C
     Route: 065

REACTIONS (6)
  - CENTRAL PONTINE MYELINOLYSIS [None]
  - CEREBELLAR SYNDROME [None]
  - ENCEPHALITIS [None]
  - NERVOUS SYSTEM DISORDER [None]
  - REFLEXES ABNORMAL [None]
  - TRANSAMINASES INCREASED [None]
